FAERS Safety Report 6284302-2 (Version None)
Quarter: 2009Q3

REPORT INFORMATION
  Report Type: 
  Country: None (occurrence: None)
  Receive Date: 20090727
  Receipt Date: 20090718
  Transmission Date: 20100115
  Serious: Yes (Death)
  Sender: FDA-Public Use
  Company Number: CN-AVENTIS-200917062GDDC

PATIENT
  Age: 80 Year
  Sex: Male

DRUGS (4)
  1. TAXOTERE [Suspect]
     Route: 042
     Dates: start: 20090506, end: 20090708
  2. TAXOTERE [Suspect]
  3. PREDNISONE [Suspect]
     Route: 048
     Dates: start: 20090506, end: 20090708
  4. TERAZOSIN [Concomitant]
     Route: 048
     Dates: start: 19910601, end: 20090717

REACTIONS (5)
  - CARDIAC FAILURE [None]
  - COUGH [None]
  - DYSPNOEA [None]
  - LUNG INFECTION [None]
  - PYREXIA [None]
